FAERS Safety Report 14641250 (Version 5)
Quarter: 2018Q3

REPORT INFORMATION
  Report Type: Spontaneous
  Country: US (occurrence: US)
  Receive Date: 20180315
  Receipt Date: 20180927
  Transmission Date: 20181010
  Serious: Yes (Congenital Anomaly, Other)
  Sender: FDA-Public Use
  Company Number: PHEH2018US009189

PATIENT
  Sex: Male

DRUGS (1)
  1. ZOFRAN [Suspect]
     Active Substance: ONDANSETRON HYDROCHLORIDE
     Indication: FOETAL EXPOSURE DURING PREGNANCY
     Dosage: MOTHER DOSE: 8 MG PRN
     Route: 064

REACTIONS (63)
  - Atrial septal defect [Unknown]
  - Left-to-right cardiac shunt [Unknown]
  - Atelectasis neonatal [Unknown]
  - Laryngeal oedema [Unknown]
  - Sinus tachycardia [Unknown]
  - Scoliosis [Unknown]
  - Wheezing [Unknown]
  - Exercise tolerance decreased [Unknown]
  - Overweight [Unknown]
  - Heart valve incompetence [Unknown]
  - Hepatic cirrhosis [Unknown]
  - Upper respiratory tract infection [Unknown]
  - Anal incontinence [Unknown]
  - Abdominal pain [Unknown]
  - Cardiac murmur [Unknown]
  - Cleft palate [Unknown]
  - Patent ductus arteriosus [Unknown]
  - Cardiac failure congestive [Unknown]
  - Craniocerebral injury [Unknown]
  - Injury [Unknown]
  - Fatigue [Unknown]
  - Decreased appetite [Unknown]
  - Hyperlipidaemia [Unknown]
  - Univentricular heart [Unknown]
  - Mitral valve incompetence [Unknown]
  - Ventricular hypokinesia [Unknown]
  - Premature baby [Unknown]
  - Foetal exposure during pregnancy [Unknown]
  - Cough [Unknown]
  - Deformity thorax [Unknown]
  - Double outlet right ventricle [Unknown]
  - Heart disease congenital [Unknown]
  - Developmental delay [Unknown]
  - Dyspnoea [Unknown]
  - Myalgia [Unknown]
  - Palpitations [Unknown]
  - Conjunctivitis [Unknown]
  - Cleft lip [Unknown]
  - Mitral valve hypoplasia [Unknown]
  - Ventricular hypoplasia [Unknown]
  - Weight decreased [Unknown]
  - Nail disorder [Unknown]
  - Deformity [Unknown]
  - Dizziness [Unknown]
  - Swelling face [Unknown]
  - Ventricular septal defect [Unknown]
  - Pulmonary valve incompetence [Unknown]
  - Right ventricular hypertrophy [Unknown]
  - Left atrial enlargement [Unknown]
  - Cyanosis [Unknown]
  - Atrioventricular block first degree [Unknown]
  - Constipation [Unknown]
  - Rhinorrhoea [Unknown]
  - Pyrexia [Unknown]
  - Thalassaemia beta [Unknown]
  - Neonatal tachypnoea [Unknown]
  - Tricuspid valve incompetence [Unknown]
  - Aortic valve incompetence [Unknown]
  - Leukopenia [Unknown]
  - Hyperbilirubinaemia neonatal [Unknown]
  - Pain in extremity [Unknown]
  - Clubbing [Unknown]
  - Gait disturbance [Unknown]

NARRATIVE: CASE EVENT DATE: 20001023
